FAERS Safety Report 25891023 (Version 1)
Quarter: 2025Q4

REPORT INFORMATION
  Report Type: Spontaneous
  Country: US (occurrence: None)
  Receive Date: 20251007
  Receipt Date: 20251007
  Transmission Date: 20260118
  Serious: Yes (Other)
  Sender: FDA-CTU
  Company Number: None

PATIENT
  Age: 65 Year
  Sex: Female
  Weight: 58.5 kg

DRUGS (1)
  1. RECLAST [Suspect]
     Active Substance: ZOLEDRONIC ACID
     Indication: Osteoporosis
     Dates: start: 20250915, end: 20250915

REACTIONS (5)
  - Joint swelling [None]
  - Nonspecific reaction [None]
  - Mobility decreased [None]
  - Joint swelling [None]
  - Muscle tightness [None]

NARRATIVE: CASE EVENT DATE: 20250920
